FAERS Safety Report 4481664-3 (Version None)
Quarter: 2004Q4

REPORT INFORMATION
  Report Type: 
  Country: None (occurrence: None)
  Receive Date: 20041021
  Receipt Date: 20041012
  Transmission Date: 20050328
  Serious: Yes (Other)
  Sender: FDA-Public Use
  Company Number: AT-MERCK-0410AUT00034

PATIENT
  Sex: Female

DRUGS (1)
  1. VIOXX [Suspect]
     Indication: HEADACHE
     Route: 048
     Dates: start: 20000101

REACTIONS (1)
  - CEREBROVASCULAR ACCIDENT [None]
